FAERS Safety Report 19217473 (Version 1)
Quarter: 2021Q2

REPORT INFORMATION
  Report Type: Spontaneous
  Country: DE (occurrence: DE)
  Receive Date: 20210505
  Receipt Date: 20210505
  Transmission Date: 20210717
  Serious: Yes (Hospitalization)
  Sender: FDA-Public Use
  Company Number: DE-STEMLINE THERAPEUTICS, INC.-2020ST000085

PATIENT
  Age: 52 Year
  Sex: Male

DRUGS (4)
  1. ELZONRIS [Suspect]
     Active Substance: TAGRAXOFUSP-ERZS
     Dosage: DAY 1 TO DAY 3 OF A 21?DAY CYCLE
     Route: 042
     Dates: start: 20201215
  2. ELZONRIS [Suspect]
     Active Substance: TAGRAXOFUSP-ERZS
     Indication: PRODUCT USED FOR UNKNOWN INDICATION
     Dosage: DAY 1 TO DAY 5 OF A 21?DAY CYCLE
     Route: 042
     Dates: start: 20201217, end: 20201219
  3. ELZONRIS [Suspect]
     Active Substance: TAGRAXOFUSP-ERZS
     Dosage: DAY 1 TO DAY 10 OF A 21?DAY CYCLE
     Route: 042
     Dates: start: 20210127, end: 20210203
  4. RAMILICH [Concomitant]
     Active Substance: RAMIPRIL
     Indication: HYPERTENSION
     Dosage: 1?0?0

REACTIONS (4)
  - Thrombocytopenia [Recovered/Resolved]
  - Hypoalbuminaemia [Recovered/Resolved]
  - Hepatic enzyme increased [Recovered/Resolved]
  - Capillary leak syndrome [Recovered/Resolved]

NARRATIVE: CASE EVENT DATE: 202012
